FAERS Safety Report 9303559 (Version 3)
Quarter: 2013Q2

REPORT INFORMATION
  Report Type: Spontaneous
  Country: CA (occurrence: CA)
  Receive Date: 20130522
  Receipt Date: 20130612
  Transmission Date: 20140414
  Serious: Yes (Hospitalization)
  Sender: FDA-Public Use
  Company Number: CA-ALEXION-A201301080

PATIENT
  Age: 9 Year
  Sex: Male
  Weight: 31 kg

DRUGS (2)
  1. SOLIRIS 300MG [Suspect]
     Indication: HAEMOLYTIC URAEMIC SYNDROME
     Dosage: 600 MG, QW
     Route: 042
     Dates: start: 20120121, end: 20120127
  2. SOLIRIS 300MG [Suspect]
     Dosage: 600 MG, Q2W
     Route: 042
     Dates: start: 20120203

REACTIONS (3)
  - Platelet count decreased [Recovered/Resolved]
  - White blood cell count decreased [Recovered/Resolved]
  - Pyrexia [Not Recovered/Not Resolved]
